FAERS Safety Report 23348115 (Version 1)
Quarter: 2023Q4

REPORT INFORMATION
  Report Type: Spontaneous
  Country: US (occurrence: US)
  Receive Date: 20231228
  Receipt Date: 20231228
  Transmission Date: 20240109
  Serious: No
  Sender: FDA-Public Use
  Company Number: US-SA-SAC20231222000676

PATIENT
  Sex: Female

DRUGS (43)
  1. DUPIXENT [Suspect]
     Active Substance: DUPILUMAB
     Indication: Asthma
     Dosage: 300 MG, QOW
     Route: 058
  2. XOPENEX [Concomitant]
     Active Substance: LEVALBUTEROL HYDROCHLORIDE
     Indication: Wheezing
  3. XOPENEX [Concomitant]
     Active Substance: LEVALBUTEROL HYDROCHLORIDE
     Indication: Dyspnoea
  4. XOPENEX [Concomitant]
     Active Substance: LEVALBUTEROL HYDROCHLORIDE
     Indication: Chest discomfort
  5. XOPENEX [Concomitant]
     Active Substance: LEVALBUTEROL HYDROCHLORIDE
     Indication: Cough
  6. MONTELUKAST [Concomitant]
     Active Substance: MONTELUKAST SODIUM
  7. XOLAIR [Concomitant]
     Active Substance: OMALIZUMAB
  8. NASACORT [Concomitant]
     Active Substance: TRIAMCINOLONE ACETONIDE
  9. EPIPEN JR [Concomitant]
     Active Substance: EPINEPHRINE
  10. DEXILANT [Concomitant]
     Active Substance: DEXLANSOPRAZOLE
  11. SYMBICORT [Concomitant]
     Active Substance: BUDESONIDE\FORMOTEROL FUMARATE DIHYDRATE
  12. BROVANA [Concomitant]
     Active Substance: ARFORMOTEROL TARTRATE
  13. ZEGERID OTC [Concomitant]
     Active Substance: OMEPRAZOLE\SODIUM BICARBONATE
  14. CALCIUM CITRATE;VITAMIN D NOS [Concomitant]
  15. NASONEX [Concomitant]
     Active Substance: MOMETASONE FUROATE
  16. RANITIDINE HYDROCHLORIDE [Concomitant]
     Active Substance: RANITIDINE HYDROCHLORIDE
  17. BENADRYL [Concomitant]
     Active Substance: DIPHENHYDRAMINE HYDROCHLORIDE
  18. AMPHOTERICIN B [Concomitant]
     Active Substance: AMPHOTERICIN B
  19. NORVASC [Concomitant]
     Active Substance: AMLODIPINE BESYLATE
  20. ALLEGRA D 12HR [Concomitant]
  21. AUGMENTIN [Concomitant]
     Active Substance: AMOXICILLIN\CLAVULANATE POTASSIUM
  22. MOXIFLOXACIN [Concomitant]
     Active Substance: MOXIFLOXACIN
  23. PREDNISONE [Concomitant]
     Active Substance: PREDNISONE
  24. PULMICORT TURBUHALER [Concomitant]
     Active Substance: BUDESONIDE
  25. FOSAMAX [Concomitant]
     Active Substance: ALENDRONATE SODIUM
  26. ALPRAZOLAM [Concomitant]
     Active Substance: ALPRAZOLAM
  27. ONDANSETRON HYDROCHLORIDE [Concomitant]
     Active Substance: ONDANSETRON HYDROCHLORIDE
  28. KENALOG [Concomitant]
     Active Substance: TRIAMCINOLONE ACETONIDE
  29. METHOTREXATE [Concomitant]
     Active Substance: METHOTREXATE
  30. FAMOTIDINE [Concomitant]
     Active Substance: FAMOTIDINE
  31. DIFLUCAN [Concomitant]
     Active Substance: FLUCONAZOLE
  32. AMLODIPINE BESYLATE [Concomitant]
     Active Substance: AMLODIPINE BESYLATE
  33. CEFUROXIME [Concomitant]
     Active Substance: CEFUROXIME
  34. QVAR [Concomitant]
     Active Substance: BECLOMETHASONE DIPROPIONATE
  35. DIFLUCAN [Concomitant]
     Active Substance: FLUCONAZOLE
  36. ONDANSETRON HYDROCHLORIDE [Concomitant]
     Active Substance: ONDANSETRON HYDROCHLORIDE
  37. XOPENEX [Concomitant]
     Active Substance: LEVALBUTEROL HYDROCHLORIDE
     Indication: Wheezing
  38. XOPENEX [Concomitant]
     Active Substance: LEVALBUTEROL HYDROCHLORIDE
     Indication: Dyspnoea
  39. XOPENEX [Concomitant]
     Active Substance: LEVALBUTEROL HYDROCHLORIDE
     Indication: Chest discomfort
  40. XOPENEX [Concomitant]
     Active Substance: LEVALBUTEROL HYDROCHLORIDE
     Indication: Cough
  41. PREDNISONE [Concomitant]
     Active Substance: PREDNISONE
  42. PREDNISONE [Concomitant]
     Active Substance: PREDNISONE
  43. XOLAIR [Concomitant]
     Active Substance: OMALIZUMAB

REACTIONS (2)
  - Sensation of foreign body [Unknown]
  - Pharyngitis [Unknown]
